FAERS Safety Report 5832210-0 (Version None)
Quarter: 2008Q3

REPORT INFORMATION
  Report Type: 
  Country: None (occurrence: None)
  Receive Date: 20080804
  Receipt Date: 20080721
  Transmission Date: 20090109
  Serious: Yes (Hospitalization)
  Sender: FDA-Public Use
  Company Number: FR-ELI LILLY AND COMPANY-FR200806003241

PATIENT
  Age: 49 Year
  Sex: Female

DRUGS (4)
  1. ZYPREXA [Suspect]
     Indication: PSYCHOTIC DISORDER
     Dosage: 30 MG, DAILY (1/D)
     Route: 048
     Dates: start: 20021001, end: 20080418
  2. TERCIAN [Concomitant]
     Dosage: 400 MG, DAILY (1/D)
     Route: 048
  3. RIVOTRIL [Concomitant]
     Dosage: 2 MG, 4/D
     Route: 048
  4. DEPAKOTE [Concomitant]
     Dosage: 500 MG, 3/D
     Route: 048

REACTIONS (9)
  - GENERAL PHYSICAL CONDITION ABNORMAL [None]
  - HYPOCALCAEMIA [None]
  - HYPOSIDERAEMIA [None]
  - HYPOTONIA [None]
  - LUNG DISORDER [None]
  - MALNUTRITION [None]
  - OVERDOSE [None]
  - PYREXIA [None]
  - THROMBOCYTOPENIA [None]
